FAERS Safety Report 19501922 (Version 1)
Quarter: 2021Q3

REPORT INFORMATION
  Report Type: Other
  Country: CA (occurrence: CA)
  Receive Date: 20210707
  Receipt Date: 20210707
  Transmission Date: 20211014
  Serious: Yes (Life-Threatening, Hospitalization, Other)
  Sender: FDA-Public Use
  Company Number: CA-TARO-2021TAR00727

PATIENT
  Age: 78 Year
  Sex: Male
  Weight: 57 kg

DRUGS (8)
  1. ATORVASTATIN [Concomitant]
     Active Substance: ATORVASTATIN
     Indication: PRODUCT USED FOR UNKNOWN INDICATION
     Dosage: UNK
     Route: 065
  2. JAMP?ASA EC [Suspect]
     Active Substance: ASPIRIN
     Indication: ARTERIOSCLEROSIS
     Dosage: 80 MILLIGRAM, OD, 1 EVERY 1 DAYS
     Route: 048
  3. CHOLECALCIFEROL [Concomitant]
     Active Substance: CHOLECALCIFEROL
     Indication: PRODUCT USED FOR UNKNOWN INDICATION
     Dosage: UNK
     Route: 065
  4. TARO?WARFARIN [Suspect]
     Active Substance: WARFARIN
     Dosage: 3 DOSAGE FORM, 6X/WEEK
     Route: 048
  5. TARO?WARFARIN [Suspect]
     Active Substance: WARFARIN
     Dosage: 3 MILLIGRAM, 6X/WEEK
     Route: 048
  6. TARO?WARFARIN [Suspect]
     Active Substance: WARFARIN
     Indication: THROMBOSIS PROPHYLAXIS
     Dosage: 2.5 MILLIGRAM, ONCE
     Route: 048
  7. PERINDOPRIL [Concomitant]
     Active Substance: PERINDOPRIL
     Indication: PRODUCT USED FOR UNKNOWN INDICATION
     Dosage: UNK
     Route: 065
  8. TARO?WARFARIN [Suspect]
     Active Substance: WARFARIN
     Dosage: 2.5 MILLIGRAM, ONCE
     Route: 048

REACTIONS (5)
  - Gastric ulcer [Unknown]
  - Colonoscopy [Unknown]
  - Transfusion [Unknown]
  - Upper gastrointestinal haemorrhage [Unknown]
  - Haemoglobin decreased [Unknown]
